FAERS Safety Report 5811637-7 (Version None)
Quarter: 2008Q3

REPORT INFORMATION
  Report Type: 
  Country: None (occurrence: None)
  Receive Date: 20080711
  Receipt Date: 20080711
  Transmission Date: 20090109
  Serious: No
  Sender: FDA-Public Use
  Company Number: None

PATIENT
  Sex: Male

DRUGS (1)
  1. ZOLPIDEM [Suspect]
     Indication: SLEEP DISORDER
     Dosage: 5MG TWICE ORAL
     Route: 048
     Dates: start: 20080330

REACTIONS (2)
  - AGITATION [None]
  - CONDITION AGGRAVATED [None]
